FAERS Safety Report 6867777-7 (Version None)
Quarter: 2010Q3

REPORT INFORMATION
  Report Type: 
  Country: None (occurrence: None)
  Receive Date: 20100722
  Receipt Date: 20100713
  Transmission Date: 20110219
  Serious: No
  Sender: FDA-Public Use
  Company Number: US-ELI_LILLY_AND_COMPANY-US201007003056

PATIENT
  Age: 79 Year
  Sex: Female

DRUGS (14)
  1. ADCIRCA [Suspect]
     Dosage: UNK, UNK
     Dates: start: 20100401
  2. AMBRISENTAN [Concomitant]
     Indication: PULMONARY HYPERTENSION
     Dosage: 5 MG, UNK
     Route: 048
     Dates: start: 20100414
  3. SINGULAIR [Concomitant]
  4. NORVASC [Concomitant]
  5. LIPITOR [Concomitant]
  6. PROVENTIL /00139501/ [Concomitant]
  7. LETAIRIS [Concomitant]
     Route: 048
     Dates: end: 20100414
  8. AVAPRO [Concomitant]
  9. CARBAMAZEPINE [Concomitant]
  10. CLONIDINE [Concomitant]
  11. SPIRONOLACTONE W/ HYDROCHLOROTHIAZIDE [Concomitant]
  12. BYSTOLIC [Concomitant]
  13. SPIRIVA [Concomitant]
  14. ASPIRIN [Concomitant]

REACTIONS (8)
  - BACK PAIN [None]
  - FATIGUE [None]
  - FLUSHING [None]
  - HEADACHE [None]
  - HYPERHIDROSIS [None]
  - MALAISE [None]
  - TREMOR [None]
  - VISION BLURRED [None]
